FAERS Safety Report 6265672-8 (Version None)
Quarter: 2009Q3

REPORT INFORMATION
  Report Type: 
  Country: None (occurrence: None)
  Receive Date: 20090709
  Receipt Date: 20090709
  Transmission Date: 20100115
  Serious: No
  Sender: FDA-Public Use
  Company Number: None

PATIENT
  Age: 19 Year
  Sex: Male
  Weight: 86.1834 kg

DRUGS (1)
  1. SEROQUEL [Suspect]
     Indication: BIPOLAR DISORDER
     Dosage: 2 PILLS AT BEDTIME PO
     Route: 048
     Dates: start: 20080826, end: 20090420

REACTIONS (5)
  - ALCOHOL USE [None]
  - DRUG TOXICITY [None]
  - SOCIAL AVOIDANT BEHAVIOUR [None]
  - VOMITING [None]
  - WEIGHT INCREASED [None]
